FAERS Safety Report 19922919 (Version 1)
Quarter: 2021Q4

REPORT INFORMATION
  Report Type: Spontaneous
  Country: CZ (occurrence: CZ)
  Receive Date: 20211006
  Receipt Date: 20211006
  Transmission Date: 20220303
  Serious: Yes (Death, Hospitalization, Other)
  Sender: FDA-Public Use
  Company Number: None

PATIENT
  Age: 63 Year
  Sex: Male
  Weight: 99 kg

DRUGS (11)
  1. TECENTRIQ [Suspect]
     Active Substance: ATEZOLIZUMAB
     Indication: Bronchial carcinoma
     Dosage: JUST ONE ADMINISTRATION, WAS LATER DISCONTINUED.
     Route: 041
     Dates: start: 20210615, end: 20210615
  2. FLEXOVE [Concomitant]
     Dosage: 1-0-1, DISCONTINUED DURING HOSPITALIZATION IN 8/2021
     Route: 048
     Dates: end: 202108
  3. METOPROLOL SUCCINATE [Concomitant]
     Active Substance: METOPROLOL SUCCINATE
     Indication: Hypertension
     Dosage: 1-0-0
     Route: 048
     Dates: start: 202009
  4. METOPROLOL SUCCINATE [Concomitant]
     Active Substance: METOPROLOL SUCCINATE
     Indication: Myocardial ischaemia
  5. URIZIA [Concomitant]
     Dosage: 6MG/0,4MG, ONCE A DAY, LONG-TERM THERAPY
     Route: 048
     Dates: end: 202108
  6. EUTHYROX [Concomitant]
     Active Substance: LEVOTHYROXINE SODIUM
     Dosage: ONCE A DAY, LONG-TERM THERAPY
     Route: 048
  7. OMEPRAZOLE [Concomitant]
     Active Substance: OMEPRAZOLE
     Dosage: 1-0-1, LONG TERM THERAPY
     Route: 048
  8. PURINOL (CZECH REPUBLIC) [Concomitant]
     Dosage: 1-0-0 DISCONTINUED DURING HOSPITALIZATION IN 8/2021
     Route: 048
     Dates: start: 202009, end: 202108
  9. PERINDOPRIL [Concomitant]
     Active Substance: PERINDOPRIL
     Dosage: 1-0-0, DISCONTINUED DURING HOSPITALIZATION IN 8/2021
     Route: 048
     Dates: start: 202009, end: 202108
  10. SPIRONOLACTONE [Concomitant]
     Active Substance: SPIRONOLACTONE
     Dosage: 0-1-0, EVERY OTHER DAY, LONG-TERM THERAPY
     Route: 048
  11. METFORMIN HYDROCHLORIDE [Concomitant]
     Active Substance: METFORMIN HYDROCHLORIDE
     Dosage: 1-0-1, LONG-TERM THERAPY, DISCONTINUED DURING HOSPITALIZATION IN 8/2021
     Route: 048
     Dates: end: 202108

REACTIONS (7)
  - Thrombocytopenia [Not Recovered/Not Resolved]
  - Hypoalbuminaemia [Not Recovered/Not Resolved]
  - Generalised oedema [Not Recovered/Not Resolved]
  - Liver disorder [Fatal]
  - Colitis [Not Recovered/Not Resolved]
  - Pneumonitis [Not Recovered/Not Resolved]
  - Coagulopathy [Not Recovered/Not Resolved]
